FAERS Safety Report 17612669 (Version 3)
Quarter: 2020Q2

REPORT INFORMATION
  Report Type: Spontaneous
  Country: US (occurrence: US)
  Receive Date: 20200401
  Receipt Date: 20200612
  Transmission Date: 20200713
  Serious: Yes (Other)
  Sender: FDA-Public Use
  Company Number: US-NOVOPROD-721148

PATIENT
  Age: 40 Year
  Sex: Male
  Weight: 108.4 kg

DRUGS (8)
  1. OZEMPIC [Suspect]
     Active Substance: SEMAGLUTIDE
     Indication: BLOOD GLUCOSE ABNORMAL
     Dosage: 0.5 MG
     Route: 058
     Dates: start: 20191112, end: 20191112
  2. TRESIBA [Concomitant]
     Active Substance: INSULIN DEGLUDEC
     Indication: BLOOD GLUCOSE ABNORMAL
     Dosage: 64 IU, QD
     Route: 058
     Dates: start: 20180507
  3. TIZANIDINE. [Concomitant]
     Active Substance: TIZANIDINE
     Indication: MUSCLE SPASMS
     Dosage: 4 MG, TID PRN
     Route: 048
     Dates: start: 20200210
  4. ASPIRIN 81 [Concomitant]
     Active Substance: ASPIRIN
     Indication: PRODUCT USED FOR UNKNOWN INDICATION
     Dosage: 81 MG, QD
     Route: 048
     Dates: start: 20181207
  5. FARXIGA [Concomitant]
     Active Substance: DAPAGLIFLOZIN PROPANEDIOL
     Indication: PRODUCT USED FOR UNKNOWN INDICATION
     Dosage: 10 MG, QD IN THE MORNING
     Route: 048
     Dates: start: 20170510
  6. OMEPRAZOLE. [Concomitant]
     Active Substance: OMEPRAZOLE
     Indication: PRODUCT USED FOR UNKNOWN INDICATION
     Dosage: 20 MG, QD BEFORE EATING
     Route: 048
     Dates: start: 20150713
  7. PRAVASTATIN. [Concomitant]
     Active Substance: PRAVASTATIN
     Indication: PRODUCT USED FOR UNKNOWN INDICATION
     Dosage: 10 MG, QD AT BEDTIME
     Route: 048
     Dates: start: 20191121
  8. PREGABALIN. [Concomitant]
     Active Substance: PREGABALIN
     Indication: PRODUCT USED FOR UNKNOWN INDICATION
     Dosage: 300 MG, BID
     Route: 048
     Dates: start: 20191115

REACTIONS (8)
  - Pulmonary mass [Unknown]
  - Abdominal hernia [Unknown]
  - Renal cyst [Unknown]
  - Pain [Recovered/Resolved]
  - Hepatic steatosis [Unknown]
  - Off label use [Recovered/Resolved]
  - Abdominal wall disorder [Recovered/Resolved]
  - Pancreatitis [Recovered/Resolved]

NARRATIVE: CASE EVENT DATE: 201911
